FAERS Safety Report 10042925 (Version 2)
Quarter: 2014Q2

REPORT INFORMATION
  Report Type: Spontaneous
  Country: US (occurrence: US)
  Receive Date: 20140328
  Receipt Date: 20140428
  Transmission Date: 20141212
  Serious: No
  Sender: FDA-Public Use
  Company Number: US-009507513-1403USA008043

PATIENT
  Sex: Female
  Weight: 80.27 kg

DRUGS (2)
  1. ASMANEX TWISTHALER [Suspect]
     Indication: ASTHMA
     Dosage: ONE PUFF, BID
     Route: 055
     Dates: start: 20131101, end: 20140128
  2. ASMANEX TWISTHALER [Suspect]
     Dosage: ONE PUFF, BID
     Route: 055
     Dates: start: 20140228

REACTIONS (4)
  - Drug ineffective [Unknown]
  - Drug dose omission [Unknown]
  - Product quality issue [Unknown]
  - No adverse event [Unknown]
